FAERS Safety Report 4476638-2 (Version None)
Quarter: 2004Q4

REPORT INFORMATION
  Report Type: 
  Country: None (occurrence: None)
  Receive Date: 20041013
  Receipt Date: 20040929
  Transmission Date: 20050328
  Serious: Yes (Hospitalization, Other)
  Sender: FDA-Public Use
  Company Number: USA040979720

PATIENT
  Age: 81 Year
  Sex: Female

DRUGS (10)
  1. EVISTA [Suspect]
     Indication: OSTEOPOROSIS
     Dosage: 60 MG DAY
     Dates: start: 19991201
  2. ACTONEL [Concomitant]
  3. SINGULAIR (MONTELUKAST) [Concomitant]
  4. AEROBID [Concomitant]
  5. SYNTHROID [Concomitant]
  6. ZETIA [Concomitant]
  7. HUMABID (GUAIFENESIN L.A.) [Suspect]
  8. CALCIUM WITH VITAMIN D [Concomitant]
  9. MULTI-VITAMIN [Concomitant]
  10. NEXIUM [Concomitant]

REACTIONS (10)
  - ASTHMA [None]
  - BACK PAIN [None]
  - BONE DENSITY DECREASED [None]
  - BRONCHITIS [None]
  - CHEST WALL PAIN [None]
  - JOINT SWELLING [None]
  - POST PROCEDURAL COMPLICATION [None]
  - SCOLIOSIS [None]
  - THROMBOSIS [None]
  - VENOUS INSUFFICIENCY [None]
